FAERS Safety Report 6946225-2 (Version None)
Quarter: 2010Q3

REPORT INFORMATION
  Report Type: 
  Country: None (occurrence: None)
  Receive Date: 20100824
  Receipt Date: 20100811
  Transmission Date: 20110219
  Serious: Yes (Hospitalization)
  Sender: FDA-Public Use
  Company Number: 2010MA001786

PATIENT

DRUGS (3)
  1. CARBAMAZEPINE [Suspect]
  2. CON MEDS [Concomitant]
  3. PREV MEDS [Concomitant]

REACTIONS (22)
  - ARTHROPATHY [None]
  - BILIARY TRACT DISORDER [None]
  - CARDIAC DISORDER [None]
  - CHILLS [None]
  - DERMATITIS EXFOLIATIVE [None]
  - DRUG HYPERSENSITIVITY [None]
  - FACE OEDEMA [None]
  - HAEMATOLOGY TEST ABNORMAL [None]
  - HYPOTENSION [None]
  - JUVENILE ARTHRITIS [None]
  - LIVER DISORDER [None]
  - LUNG DISORDER [None]
  - LYMPHADENOPATHY [None]
  - MYOCARDITIS [None]
  - NERVOUS SYSTEM DISORDER [None]
  - PANCREATIC DISORDER [None]
  - PERIORBITAL OEDEMA [None]
  - PHARYNGEAL DISORDER [None]
  - PYREXIA [None]
  - RASH MACULO-PAPULAR [None]
  - RENAL DISORDER [None]
  - VITAMIN D DEFICIENCY [None]
